FAERS Safety Report 8427122-2 (Version None)
Quarter: 2012Q2

REPORT INFORMATION
  Report Type: 
  Country: None (occurrence: None)
  Receive Date: 20120611
  Receipt Date: 20120523
  Transmission Date: 20120825
  Serious: Yes (Hospitalization)
  Sender: FDA-Public Use
  Company Number: US-ELI_LILLY_AND_COMPANY-US201204009735

PATIENT
  Sex: Female

DRUGS (6)
  1. PROZAC [Suspect]
     Dosage: 80 MG, QD
  2. FLEXERIL [Concomitant]
  3. TRAZODONE HCL [Concomitant]
  4. FORTEO [Suspect]
     Indication: OSTEOPOROSIS
     Dosage: UNK, UNKNOWN
     Dates: start: 20120418, end: 20120426
  5. PROZAC [Suspect]
     Indication: DEPRESSION
  6. CYMBALTA [Suspect]
     Indication: DEPRESSION
     Dosage: UNK
     Dates: start: 20090101

REACTIONS (9)
  - INCISION SITE INFECTION [None]
  - SMALL INTESTINAL OBSTRUCTION [None]
  - MIGRAINE [None]
  - FEELING ABNORMAL [None]
  - ABDOMINAL DISTENSION [None]
  - INSOMNIA [None]
  - PAIN [None]
  - MALAISE [None]
  - WOUND COMPLICATION [None]
